FAERS Safety Report 8208816-0 (Version None)
Quarter: 2012Q1

REPORT INFORMATION
  Report Type: 
  Country: None (occurrence: None)
  Receive Date: 20120314
  Receipt Date: 20120308
  Transmission Date: 20120608
  Serious: Yes (Life-Threatening, Hospitalization, Other)
  Sender: FDA-Public Use
  Company Number: BR-PFIZER INC-2012062841

PATIENT
  Age: 42 Year
  Sex: Female

DRUGS (8)
  1. GEODON [Suspect]
     Indication: BIPOLAR DISORDER
     Route: 048
  2. TEGRETOL [Suspect]
     Dosage: 8000 MG, SINGLE
     Route: 048
  3. CLONAZEPAM [Suspect]
     Indication: BIPOLAR DISORDER
     Route: 048
  4. GEODON [Suspect]
     Dosage: 2400 MG, SINGLE
     Route: 048
  5. TEGRETOL [Suspect]
     Indication: BIPOLAR DISORDER
     Route: 048
  6. CYMBALTA [Suspect]
     Dosage: 1800 MG, SINGLE
     Route: 048
  7. CLONAZEPAM [Suspect]
     Dosage: 80 MG, SINGLE
     Route: 048
  8. CYMBALTA [Suspect]
     Indication: BIPOLAR DISORDER
     Route: 048

REACTIONS (2)
  - MULTIPLE DRUG OVERDOSE INTENTIONAL [None]
  - SUICIDE ATTEMPT [None]
